FAERS Safety Report 13720786 (Version 1)
Quarter: 2017Q3

REPORT INFORMATION
  Report Type: Spontaneous
  Country: FR (occurrence: FR)
  Receive Date: 20170706
  Receipt Date: 20170706
  Transmission Date: 20171127
  Serious: Yes (Hospitalization)
  Sender: FDA-Public Use
  Company Number: FR-ROCHE-1957555

PATIENT
  Age: 64 Year
  Sex: Female

DRUGS (8)
  1. ISORYTHM [Concomitant]
     Active Substance: DISOPYRAMIDE
     Indication: SUPRAVENTRICULAR EXTRASYSTOLES
  2. DOLIPRANE [Concomitant]
     Active Substance: ACETAMINOPHEN
  3. COTELLIC [Suspect]
     Active Substance: COBIMETINIB
     Indication: MALIGNANT MELANOMA
     Route: 048
     Dates: start: 20160302, end: 20170524
  4. ZELBORAF [Concomitant]
     Active Substance: VEMURAFENIB
     Route: 065
  5. RILMENIDINE [Concomitant]
     Active Substance: RILMENIDINE
  6. CACIT VITAMINE D3 [Concomitant]
     Active Substance: CALCIUM CARBONATE\CHOLECALCIFEROL
  7. OMEPRAZOLE. [Concomitant]
     Active Substance: OMEPRAZOLE
  8. COVERSYL [Concomitant]
     Active Substance: PERINDOPRIL

REACTIONS (3)
  - Ventricular dysfunction [Recovered/Resolved]
  - Intracardiac thrombus [Not Recovered/Not Resolved]
  - Stress cardiomyopathy [Recovered/Resolved]

NARRATIVE: CASE EVENT DATE: 20170523
